FAERS Safety Report 16665202 (Version 1)
Quarter: 2019Q3

REPORT INFORMATION
  Report Type: Spontaneous
  Country: GB (occurrence: GB)
  Receive Date: 20190803
  Receipt Date: 20190803
  Transmission Date: 20191004
  Serious: Yes (Hospitalization)
  Sender: FDA-Public Use
  Company Number: GB-AUROBINDO-AUR-APL-2019-045066

PATIENT

DRUGS (23)
  1. DOCUSATE SODIUM. [Suspect]
     Active Substance: DOCUSATE SODIUM
     Indication: CONSTIPATION
     Dosage: 200 MILLIGRAM DAILY
     Route: 048
  2. MULTIVITAMINS [Suspect]
     Active Substance: VITAMINS
     Indication: PANCREATIC FAILURE
     Dosage: UNK (TABLETS/CAPSULES - 1 TABLET EACH MORNING 28 DAYS)
     Route: 048
  3. MACROGOL POWDER FOR ORAL SOLUTION [Suspect]
     Active Substance: POLYETHYLENE GLYCOLS
     Indication: DISTAL INTESTINAL OBSTRUCTION SYNDROME
     Dosage: UNK (1SACHET TWICE DAILY AT LOAM)
     Route: 048
  4. MONTELUKAST [Suspect]
     Active Substance: MONTELUKAST SODIUM
     Indication: ASTHMA
     Dosage: 10 MILLIGRAM (EACH NIGHT 28 DAYS)
     Route: 048
  5. PARACETAMOL [Suspect]
     Active Substance: ACETAMINOPHEN
     Indication: PYREXIA
     Dosage: UNK
     Route: 065
  6. ZOPICLONE FILM COATED TABLET [Suspect]
     Active Substance: ZOPICLONE
     Indication: INSOMNIA
     Dosage: 3.75 MILLIGRAM (EACH NIGHT 28 DAYS)
     Route: 048
  7. SALBUTAMOL [Suspect]
     Active Substance: ALBUTEROL
     Indication: PRODUCT USED FOR UNKNOWN INDICATION
     Dosage: 100 MICROGRAM (2 PUFF(S) PRN 28 DAYS)
     Route: 065
  8. SODIUM CHLORIDE. [Suspect]
     Active Substance: SODIUM CHLORIDE
     Indication: HYPONATRAEMIA
     Dosage: 600 MILLIGRAM (1800 MG THREE TIMES A DAY)
     Route: 048
  9. CICLESONIDE [Suspect]
     Active Substance: CICLESONIDE
     Indication: ASTHMA
     Dosage: 160 MICROGRAM (160 MICROGRAM EACH MORNING)
     Route: 065
  10. OMEPRAZOLE. [Suspect]
     Active Substance: OMEPRAZOLE
     Indication: GASTROOESOPHAGEAL REFLUX DISEASE
     Dosage: 40 MILLIGRAM
     Route: 048
  11. FLUTICASONE FUROATE [Suspect]
     Active Substance: FLUTICASONE FUROATE
     Indication: RHINITIS
     Dosage: 27.5 MICROGRAM EACH MORNING
     Route: 065
  12. SYMBICORT [Suspect]
     Active Substance: BUDESONIDE\FORMOTEROL FUMARATE DIHYDRATE
     Indication: ASTHMA
     Dosage: UNK (BUDESONIDE 200MCG I FORMETROL6MCG, 2 PUFF(S) TWICE DAILY MORNING)
     Route: 065
  13. COLECALCIFEROL [Suspect]
     Active Substance: CHOLECALCIFEROL
     Indication: PANCREATIC FAILURE
     Dosage: 800 DOSAGE FORM (CAPSULES/TABLETS, 800 UNIT)
     Route: 048
  14. PARACETAMOL TABLET [Suspect]
     Active Substance: ACETAMINOPHEN
     Indication: PAIN
     Dosage: 500 MILLIGRAM (MAX 4G DAILY 1000 MG FOUR TIMES A DAY)
     Route: 048
  15. SODIUM CHLORIDE. [Suspect]
     Active Substance: SODIUM CHLORIDE
     Indication: PRODUCT USED FOR UNKNOWN INDICATION
     Dosage: UNK (4 ML EVERY MORNING AT 6 A.M.)
     Route: 065
  16. TOCOPHEROL ACETATE [Suspect]
     Active Substance: .ALPHA.-TOCOPHEROL ACETATE
     Indication: PANCREATIC FAILURE
     Dosage: 134 MILLIGRAM (EVERY MORNING AT 6 A.M.)
     Route: 048
  17. COLOBREATHE [Suspect]
     Active Substance: COLISTIMETHATE SODIUM
     Indication: CYSTIC FIBROSIS
     Dosage: 1,662,500 IU; TWICE DAILY.
     Route: 055
     Dates: start: 20140523, end: 20190226
  18. AZITHROMYCIN FILM-COATED TABLETS [Suspect]
     Active Substance: AZITHROMYCIN ANHYDROUS
     Indication: PSEUDOMONAS INFECTION
     Dosage: 250 MILLIGRAM (EACH MORNING 28 DAYS)
     Route: 048
  19. CARBOCISTEINE [Suspect]
     Active Substance: CARBOCYSTEINE
     Indication: PRODUCT USED FOR UNKNOWN INDICATION
     Dosage: 375 MILLIGRAM (750 MG THREE TIMES A DAY)
     Route: 048
  20. CREON [Suspect]
     Active Substance: PANCRELIPASE AMYLASE\PANCRELIPASE LIPASE\PANCRELIPASE PROTEASE
     Indication: PANCREATIC FAILURE
     Dosage: 10000 MILLIGRAM (5 CAPSULE THREE TIMES A DAY WITH FOOD)
     Route: 048
  21. DORNASE ALFA. [Suspect]
     Active Substance: DORNASE ALFA
     Indication: PRODUCT USED FOR UNKNOWN INDICATION
     Dosage: 2.5 MG EACH MORNING 2-DAYS, MUCOLYTIC
     Route: 065
  22. COLOBREATHE [Suspect]
     Active Substance: COLISTIMETHATE SODIUM
     Indication: PSEUDOMONAS INFECTION
     Dosage: UNK
     Route: 065
  23. VITAMIN A + D [ERGOCALCIFEROL\RETINOL] [Suspect]
     Active Substance: ERGOCALCIFEROL\RETINOL
     Indication: PANCREATIC FAILURE
     Dosage: UNK (2 CAPSULES EVERY MORNING AT 6 A.M.)
     Route: 048

REACTIONS (9)
  - Nasopharyngitis [Recovered/Resolved]
  - Condition aggravated [Recovered/Resolved]
  - Dry throat [Recovered/Resolved]
  - Hypersomnia [Recovered/Resolved]
  - Cough [Recovered/Resolved]
  - Influenza [Recovered/Resolved]
  - Decreased appetite [Recovered/Resolved]
  - Chest discomfort [Recovered/Resolved]
  - Bone pain [Recovered/Resolved]

NARRATIVE: CASE EVENT DATE: 20190222
